FAERS Safety Report 6013527-6 (Version None)
Quarter: 2008Q4

REPORT INFORMATION
  Report Type: 
  Country: None (occurrence: None)
  Receive Date: 20081219
  Receipt Date: 20081215
  Transmission Date: 20090506
  Serious: Yes (Other)
  Sender: FDA-Public Use
  Company Number: PHHY2008GB29966

PATIENT
  Sex: Female

DRUGS (6)
  1. TEGRETOL [Suspect]
     Indication: EPILEPSY
     Dosage: 400 MG, BID
     Route: 048
     Dates: start: 20080912
  2. TEGRETOL [Suspect]
     Dosage: 200 MG
     Route: 048
     Dates: start: 20080220, end: 20080521
  3. TEGRETOL [Suspect]
     Dosage: 200 MGX2
     Dates: start: 20080521, end: 20080912
  4. LEVETIRACETAM [Concomitant]
     Indication: EPILEPSY
     Dosage: 750 MG, BID
  5. BISACODYL [Concomitant]
     Indication: CONSTIPATION
     Dosage: 5 MG PRN
  6. FOLIC ACID [Concomitant]
     Dosage: 5 MG, QD

REACTIONS (10)
  - APLASTIC ANAEMIA [None]
  - ARTHRALGIA [None]
  - CONSTIPATION [None]
  - DYSGEUSIA [None]
  - DYSPEPSIA [None]
  - HYPERSENSITIVITY [None]
  - LOSS OF LIBIDO [None]
  - MUSCLE SPASMS [None]
  - MYALGIA [None]
  - TINNITUS [None]
